FAERS Safety Report 6558572-7 (Version None)
Quarter: 2010Q1

REPORT INFORMATION
  Report Type: 
  Country: None (occurrence: None)
  Receive Date: 20100129
  Receipt Date: 20100105
  Transmission Date: 20100710
  Serious: No
  Sender: FDA-Public Use
  Company Number: A0813166A

PATIENT
  Age: 18 Year
  Sex: Female

DRUGS (6)
  1. MEPRON [Suspect]
     Indication: DRUG USE FOR UNKNOWN INDICATION
     Dosage: 1TSP TWICE PER DAY
     Route: 048
  2. SKELAXIN [Concomitant]
  3. CLONAZEPAM [Concomitant]
  4. LYRICA [Concomitant]
  5. TRAMADOL [Concomitant]
  6. AZITHROMYCIN [Concomitant]

REACTIONS (2)
  - NAUSEA [None]
  - PRODUCT QUALITY ISSUE [None]
